FAERS Safety Report 18695816 (Version 1)
Quarter: 2021Q1

REPORT INFORMATION
  Report Type: Spontaneous
  Country: US (occurrence: US)
  Receive Date: 20210104
  Receipt Date: 20210104
  Transmission Date: 20210419
  Serious: Yes (Death, Hospitalization)
  Sender: FDA-Public Use
  Company Number: US-MYLANLABS-2020M1106434

PATIENT
  Age: 49 Year
  Sex: Male

DRUGS (4)
  1. L?CARNITINE                        /00878601/ [Suspect]
     Active Substance: LEVOCARNITINE
     Indication: ENCEPHALOPATHY
     Dosage: UNK
     Route: 065
  2. VALPROIC ACID. [Suspect]
     Active Substance: VALPROIC ACID
     Dosage: 1000 MILLIGRAM DOSE INCREASED FROM 500MG TO 1000 MG
     Route: 065
  3. ACETYLCYSTEINE. [Suspect]
     Active Substance: ACETYLCYSTEINE
     Indication: ENCEPHALOPATHY
     Dosage: UNK
     Route: 065
  4. VALPROIC ACID. [Suspect]
     Active Substance: VALPROIC ACID
     Indication: BIPOLAR I DISORDER
     Dosage: 500 MILLIGRAM
     Route: 065

REACTIONS (4)
  - Encephalopathy [Fatal]
  - Off label use [Unknown]
  - Acute hepatic failure [Fatal]
  - Drug ineffective for unapproved indication [Unknown]
